FAERS Safety Report 5750992-3 (Version None)
Quarter: 2008Q2

REPORT INFORMATION
  Report Type: 
  Country: None (occurrence: None)
  Receive Date: 20080528
  Receipt Date: 20080520
  Transmission Date: 20081010
  Serious: Yes (Other)
  Sender: FDA-Public Use
  Company Number: US-GENENTECH-261374

PATIENT

DRUGS (2)
  1. AVASTIN [Suspect]
     Indication: GLIOBLASTOMA
  2. IRINOTECAN HCL [Concomitant]
     Indication: GLIOBLASTOMA

REACTIONS (1)
  - PANCREATITIS [None]
